FAERS Safety Report 13210016 (Version 1)
Quarter: 2017Q1

REPORT INFORMATION
  Report Type: Spontaneous
  Country: KR (occurrence: KR)
  Receive Date: 20170210
  Receipt Date: 20170210
  Transmission Date: 20170428
  Serious: Yes (Hospitalization)
  Sender: FDA-Public Use
  Company Number: KR-SCIEGEN PHARMACEUTICALS INC-2017SCILIT00101

PATIENT
  Age: 12 Year
  Sex: Male

DRUGS (2)
  1. ATOMOXETINE [Suspect]
     Active Substance: ATOMOXETINE
     Indication: ATTENTION DEFICIT/HYPERACTIVITY DISORDER
  2. ARIPIPRAZOLE. [Suspect]
     Active Substance: ARIPIPRAZOLE
     Indication: TIC
     Dosage: 7.5 MG, QD
     Route: 065

REACTIONS (5)
  - Agitation [Unknown]
  - Bulbar palsy [Unknown]
  - Anxiety [Unknown]
  - Cranial nerve disorder [Unknown]
  - Anti-ganglioside antibody positive [Unknown]
